FAERS Safety Report 17966755 (Version 1)
Quarter: 2020Q2

REPORT INFORMATION
  Report Type: Report from Study
  Country: None (occurrence: SI)
  Receive Date: 20200630
  Receipt Date: 20200630
  Transmission Date: 20200714
  Serious: Yes (Death, Hospitalization)
  Sender: FDA-Public Use
  Company Number: SI-ABBVIE-20K-261-3464088-00

PATIENT
  Age: 81 Year
  Sex: Male

DRUGS (1)
  1. DUODOPA [Suspect]
     Active Substance: CARBIDOPA\LEVODOPA
     Indication: PARKINSON^S DISEASE
     Route: 050
     Dates: start: 201605, end: 202006

REACTIONS (4)
  - Sepsis [Fatal]
  - Hypoglycaemia [Unknown]
  - Cardiac arrest [Unknown]
  - Epilepsy [Unknown]

NARRATIVE: CASE EVENT DATE: 20200528
